FAERS Safety Report 13103501 (Version 1)
Quarter: 2017Q1

REPORT INFORMATION
  Report Type: Report from Study
  Country: FR (occurrence: FR)
  Receive Date: 20170111
  Receipt Date: 20170111
  Transmission Date: 20170428
  Serious: Yes (Hospitalization)
  Sender: FDA-Public Use
  Company Number: FR-ROCHE-1429295

PATIENT
  Sex: Female

DRUGS (11)
  1. SIFROL [Concomitant]
     Active Substance: PRAMIPEXOLE
     Route: 065
  2. TRIVASTAL [Concomitant]
     Active Substance: PIRIBEDIL
     Route: 065
  3. CIMZIA [Concomitant]
     Active Substance: CERTOLIZUMAB PEGOL
     Indication: RHEUMATOID ARTHRITIS
  4. TOCILIZUMAB [Suspect]
     Active Substance: TOCILIZUMAB
     Indication: RHEUMATOID ARTHRITIS
     Dosage: AT 8MG/KG
     Route: 042
     Dates: start: 20121015
  5. UVEDOSE [Concomitant]
     Active Substance: CHOLECALCIFEROL
     Route: 065
  6. OXYCONTIN [Concomitant]
     Active Substance: OXYCODONE HYDROCHLORIDE
     Route: 065
  7. ZOPICLONE [Concomitant]
     Active Substance: ZOPICLONE
     Route: 065
  8. THERALENE (FRANCE) [Concomitant]
     Active Substance: TRIMEPRAZINE
     Route: 065
  9. TOCILIZUMAB [Suspect]
     Active Substance: TOCILIZUMAB
     Dosage: AT 8MG/KG
     Route: 042
     Dates: start: 20121112
  10. EFFERALGAN CODEINE [Concomitant]
     Active Substance: ACETAMINOPHEN\CODEINE PHOSPHATE
     Route: 065
  11. STALEVO [Concomitant]
     Active Substance: CARBIDOPA\ENTACAPONE\LEVODOPA
     Route: 065

REACTIONS (14)
  - Vascular stent thrombosis [Recovered/Resolved with Sequelae]
  - Upper respiratory tract infection [Recovered/Resolved]
  - Aortic stenosis [Recovered/Resolved]
  - Fall [Unknown]
  - Oedema peripheral [Recovered/Resolved]
  - Weight increased [Not Recovered/Not Resolved]
  - Dyspnoea [Recovered/Resolved]
  - Acute kidney injury [Unknown]
  - Asthenia [Not Recovered/Not Resolved]
  - Nasal herpes [Recovered/Resolved]
  - Sciatica [Recovered/Resolved]
  - Humerus fracture [Recovered/Resolved with Sequelae]
  - Acute coronary syndrome [Recovered/Resolved with Sequelae]
  - Oral herpes [Recovered/Resolved]

NARRATIVE: CASE EVENT DATE: 20121112
